FAERS Safety Report 8952657 (Version 1)
Quarter: 2012Q4

REPORT INFORMATION
  Report Type: Report from Study
  Country: FR (occurrence: FR)
  Receive Date: 20121205
  Receipt Date: 20121205
  Transmission Date: 20130627
  Serious: Yes (Other)
  Sender: FDA-Public Use
  Company Number: FR-SANOFI-AVENTIS-2012SA087581

PATIENT
  Age: 40 Year
  Sex: Female
  Weight: 60 kg

DRUGS (9)
  1. DOCETAXEL [Suspect]
     Indication: HER-2 POSITIVE BREAST CANCER
     Dosage: dose level- 6m/m2(97mg)
form - vial
     Route: 042
     Dates: start: 20091218
  2. DOCETAXEL [Suspect]
     Indication: HER-2 POSITIVE BREAST CANCER
     Dosage: doe reduced
form - vial
     Route: 042
     Dates: start: 20100108
  3. CARBOPLATIN [Suspect]
     Indication: HER-2 POSITIVE BREAST CANCER
     Dosage: dose level :5 AUC(617mg)
form - vial
     Route: 042
     Dates: start: 20091218
  4. CARBOPLATIN [Suspect]
     Indication: HER-2 POSITIVE BREAST CANCER
     Dosage: dose reduced
form - vial
     Route: 042
     Dates: start: 20100108
  5. BEVACIZUMAB [Suspect]
     Indication: HER-2 POSITIVE BREAST CANCER
     Dosage: form - vial
dose level-15mg/kg( 900mg)
     Route: 042
     Dates: start: 20091218, end: 20100402
  6. BEVACIZUMAB [Suspect]
     Indication: HER-2 POSITIVE BREAST CANCER
     Dosage: 7th cycle
     Route: 042
     Dates: start: 20100430
  7. TRASTUZUMAB [Suspect]
     Indication: HER-2 POSITIVE BREAST CANCER
     Dosage: dose level- 6mg/kg(359.1mg)
form - vial
     Route: 042
     Dates: start: 20091218, end: 20100402
  8. TRASTUZUMAB [Suspect]
     Indication: HER-2 POSITIVE BREAST CANCER
     Dosage: 7th cycle
     Route: 042
     Dates: start: 20100430
  9. PEGFILGRASTIM [Concomitant]
     Dates: start: 20091219, end: 20100403

REACTIONS (1)
  - Oscillopsia [Recovered/Resolved]
